FAERS Safety Report 12678967 (Version 3)
Quarter: 2017Q1

REPORT INFORMATION
  Report Type: Report from Study
  Country: FR (occurrence: FR)
  Receive Date: 20160824
  Receipt Date: 20170214
  Transmission Date: 20170428
  Serious: Yes (Other)
  Sender: FDA-Public Use
  Company Number: FR-ROCHE-1817759

PATIENT
  Age: 57 Year
  Sex: Female

DRUGS (3)
  1. RANIBIZUMAB [Suspect]
     Active Substance: RANIBIZUMAB
     Dosage: (BOTH EYES)
     Route: 031
     Dates: start: 20150318, end: 20150318
  2. RANIBIZUMAB [Suspect]
     Active Substance: RANIBIZUMAB
     Indication: DIABETIC RETINAL OEDEMA
     Dosage: (BOTH EYES)
     Route: 031
     Dates: start: 20150128
  3. RANIBIZUMAB [Suspect]
     Active Substance: RANIBIZUMAB
     Dosage: (BOTH EYES)
     Route: 031
     Dates: start: 20150225

REACTIONS (5)
  - Diabetic retinopathy [Recovered/Resolved]
  - Eye pain [Recovered/Resolved]
  - Ocular discomfort [Unknown]
  - Eyelid irritation [Recovered/Resolved]
  - Visual impairment [Unknown]

NARRATIVE: CASE EVENT DATE: 20150203
